FAERS Safety Report 9845874 (Version 5)
Quarter: 2019Q3

REPORT INFORMATION
  Report Type: Spontaneous
  Country: US (occurrence: US)
  Receive Date: 20140127
  Receipt Date: 20190920
  Transmission Date: 20191005
  Serious: No
  Sender: FDA-Public Use
  Company Number: US-PFIZER INC-2014021115

PATIENT
  Age: 56 Year
  Sex: Female

DRUGS (2)
  1. FLAGYL [Suspect]
     Active Substance: METRONIDAZOLE\METRONIDAZOLE HYDROCHLORIDE
     Dosage: UNK
  2. DIMETAPP [Suspect]
     Active Substance: BROMPHENIRAMINE\PSEUDOEPHEDRINE
     Dosage: UNK

REACTIONS (1)
  - Drug hypersensitivity [Unknown]
